FAERS Safety Report 4831091-1 (Version None)
Quarter: 2005Q4

REPORT INFORMATION
  Report Type: 
  Country: None (occurrence: None)
  Receive Date: 20051116
  Receipt Date: 20051116
  Transmission Date: 20060501
  Serious: No
  Sender: FDA-Public Use
  Company Number: None

PATIENT
  Age: 32 Year
  Sex: Male
  Weight: 111.1313 kg

DRUGS (2)
  1. POLYGAM [Suspect]
     Indication: MYASTHENIA GRAVIS
     Dosage: 20 GRAMS DAILY IV
     Route: 042
     Dates: start: 20051027, end: 20051029
  2. POLYGAM [Suspect]

REACTIONS (3)
  - HEADACHE [None]
  - INFUSION RELATED REACTION [None]
  - MENINGITIS ASEPTIC [None]
